FAERS Safety Report 5538445-9 (Version None)
Quarter: 2007Q4

REPORT INFORMATION
  Report Type: 
  Country: None (occurrence: None)
  Receive Date: 20071205
  Receipt Date: 20071120
  Transmission Date: 20080405
  Serious: Yes (Other)
  Sender: FDA-Public Use
  Company Number: 8028300

PATIENT
  Sex: Male

DRUGS (4)
  1. KEPPRA [Suspect]
     Indication: EPILEPSY
     Dosage: 1000 G 2/D
  2. FUROSEMIDE [Concomitant]
  3. OXCARBAZEPINE [Concomitant]
  4. RANITIDINE HCL [Concomitant]

REACTIONS (1)
  - OESOPHAGEAL CARCINOMA [None]
